FAERS Safety Report 4341504-X (Version None)
Quarter: 2004Q2

REPORT INFORMATION
  Report Type: 
  Country: None (occurrence: None)
  Receive Date: 20040415
  Receipt Date: 20040402
  Transmission Date: 20050107
  Serious: Yes (Hospitalization, Other)
  Sender: FDA-Public Use
  Company Number: 2004022855

PATIENT
  Age: 57 Year
  Sex: Female

DRUGS (4)
  1. VIAGRA [Suspect]
     Indication: PULMONARY HYPERTENSION
     Dosage: 50 MG, ORAL
     Route: 048
     Dates: start: 20040326, end: 20040331
  2. ACETYLSALICYLIC ACID SRT [Concomitant]
  3. WARFARIN SODIUM [Concomitant]
  4. BERAPROST SODIUM (BERAPROST SODIUM) [Concomitant]

REACTIONS (2)
  - HAEMOPTYSIS [None]
  - PULMONARY INFARCTION [None]
